FAERS Safety Report 9224272 (Version 1)
Quarter: 2013Q1

REPORT INFORMATION
  Report Type: Spontaneous
  Country: US (occurrence: US)
  Receive Date: 20120914
  Receipt Date: 20120914
  Transmission Date: 20140127
  Serious: Yes (Other)
  Sender: FDA-Public Use
  Company Number: JPI-P-016634

PATIENT
  Age: 40 Year
  Sex: Female
  Weight: 58.97 kg

DRUGS (1)
  1. XYREM (500 MG/ML SOLUTION)(SODIUM OXYBATE) [Suspect]
     Indication: NARCOLEPSY
     Dosage: 2 DOSES OF 3 GM TAKEN NIGHTLY/AT BEDTIME.
     Route: 048
     Dates: start: 201009, end: 201011

REACTIONS (3)
  - Substance abuse [None]
  - Aggression [None]
  - Abnormal behaviour [None]
